FAERS Safety Report 9194121 (Version 1)
Quarter: 2013Q1

REPORT INFORMATION
  Report Type: Spontaneous
  Country: US (occurrence: US)
  Receive Date: 20130327
  Receipt Date: 20130327
  Transmission Date: 20140127
  Serious: Yes (Hospitalization)
  Sender: FDA-Public Use
  Company Number: US-NICOBRDEVP-2013-04936

PATIENT
  Age: 61 Year
  Sex: Female

DRUGS (1)
  1. ALENDRONATE SODIUM [Suspect]
     Indication: OSTEOPOROSIS
     Dosage: ONE A WEEK
     Route: 048

REACTIONS (5)
  - Vaginal haemorrhage [Unknown]
  - Pain [Unknown]
  - Asthenia [Unknown]
  - Appendicitis [Recovered/Resolved]
  - Appendicitis perforated [Recovered/Resolved]
